FAERS Safety Report 5829801-X (Version None)
Quarter: 2008Q3

REPORT INFORMATION
  Report Type: 
  Country: None (occurrence: None)
  Receive Date: 20080722
  Receipt Date: 20070521
  Transmission Date: 20090109
  Serious: Yes (Hospitalization)
  Sender: FDA-Public Use
  Company Number: 2007BI010980

PATIENT
  Age: 36 Year
  Sex: Male
  Weight: 90.7194 kg

DRUGS (6)
  1. AVONEX [Suspect]
     Indication: MULTIPLE SCLEROSIS
     Dosage: 30 UG;QW;IM
     Route: 030
     Dates: start: 20061201, end: 20070518
  2. NEURONTIN [Concomitant]
  3. LISINOPRIL [Concomitant]
  4. CLONIDINE [Concomitant]
  5. WELLBUTRIN [Concomitant]
  6. RANITIDINE [Concomitant]

REACTIONS (2)
  - CHEST PAIN [None]
  - DYSPNOEA [None]
